FAERS Safety Report 16529398 (Version 2)
Quarter: 2019Q4

REPORT INFORMATION
  Report Type: Spontaneous
  Country: US (occurrence: US)
  Receive Date: 20190704
  Receipt Date: 20191002
  Transmission Date: 20200122
  Serious: No
  Sender: FDA-Public Use
  Company Number: US-GW PHARMA-201906USGW1837

PATIENT

DRUGS (8)
  1. BANZEL [Concomitant]
     Active Substance: RUFINAMIDE
     Indication: PRODUCT USED FOR UNKNOWN INDICATION
     Dosage: 1200 MILLIGRAM, BID
     Route: 065
  2. EPIDIOLEX [Suspect]
     Active Substance: CANNABIDIOL
     Dosage: 8.24 MG/KG, 490 MILLIGRAM, BID, FOR WEEK 2
     Route: 048
     Dates: start: 2019, end: 2019
  3. EPIDIOLEX [Suspect]
     Active Substance: CANNABIDIOL
     Dosage: 4.88 MG/KG, 290 MILLIGRAM, BID
     Route: 048
     Dates: start: 201906
  4. VIMPAT [Concomitant]
     Active Substance: LACOSAMIDE
     Indication: PRODUCT USED FOR UNKNOWN INDICATION
     Dosage: 200 MILLIGRAM, BID
     Route: 065
  5. EPIDIOLEX [Suspect]
     Active Substance: CANNABIDIOL
     Dosage: 6.56 MG/KG, 390 MILLIGRAM, BID, FOR WEEK 1
     Route: 048
     Dates: start: 20190504, end: 2019
  6. ONFI [Concomitant]
     Active Substance: CLOBAZAM
     Indication: PRODUCT USED FOR UNKNOWN INDICATION
     Dosage: 40 MILLIGRAM, QD (HS)
     Route: 065
  7. EPIDIOLEX [Suspect]
     Active Substance: CANNABIDIOL
     Indication: LENNOX-GASTAUT SYNDROME
     Dosage: 4.88 MG/KG, 290 MILLIGRAM, BID
     Route: 048
     Dates: start: 20190213, end: 20190504
  8. EPIDIOLEX [Suspect]
     Active Substance: CANNABIDIOL
     Dosage: 9.93 MG/KG, 590 MILLIGRAM, BID, THERE AFTER
     Route: 048
     Dates: start: 2019, end: 201906

REACTIONS (8)
  - Insomnia [Recovered/Resolved]
  - Lethargy [Recovered/Resolved]
  - Agitation [Unknown]
  - Seizure [Unknown]
  - Fall [Unknown]
  - Paranoia [Recovered/Resolved]
  - Injury [Unknown]
  - Contusion [Unknown]

NARRATIVE: CASE EVENT DATE: 2019
